FAERS Safety Report 4342643-X (Version None)
Quarter: 2004Q2

REPORT INFORMATION
  Report Type: 
  Country: None (occurrence: None)
  Receive Date: 20040421
  Receipt Date: 20040416
  Transmission Date: 20050107
  Serious: Yes (Hospitalization)
  Sender: FDA-Public Use
  Company Number: 200414170GDDC

PATIENT
  Age: 10 Year
  Sex: Male

DRUGS (2)
  1. MINIRIN ^FERRING^ [Suspect]
     Indication: ENURESIS
     Route: 048
     Dates: start: 20031029, end: 20031202
  2. METHYLPHENIDATE HCL [Concomitant]
     Indication: ATTENTION DEFICIT/HYPERACTIVITY DISORDER
     Dosage: DOSE: UNK
     Route: 048

REACTIONS (1)
  - CONVULSION [None]
